FAERS Safety Report 7636359-1 (Version None)
Quarter: 2011Q3

REPORT INFORMATION
  Report Type: 
  Country: None (occurrence: None)
  Receive Date: 20110726
  Receipt Date: 20110712
  Transmission Date: 20111222
  Serious: Yes (Other)
  Sender: FDA-Public Use
  Company Number: FR-GLAXOSMITHKLINE-B0705568A

PATIENT

DRUGS (1)
  1. ITRACONAZOLE [Suspect]
     Indication: ASPERGILLOSIS
     Dosage: 200MG PER DAY
     Route: 065

REACTIONS (6)
  - PRODUCTIVE COUGH [None]
  - CARDIAC FAILURE ACUTE [None]
  - DYSPNOEA [None]
  - COUGH [None]
  - ASPERGILLOSIS [None]
  - OEDEMA [None]
